FAERS Safety Report 8589021 (Version 3)
Quarter: 2012Q4

REPORT INFORMATION
  Report Type: Report from Study
  Country: IT (occurrence: IT)
  Receive Date: 20120531
  Receipt Date: 20121016
  Transmission Date: 20130627
  Serious: Yes (Hospitalization)
  Sender: FDA-Public Use
  Company Number: IT-BAXTER-2012BAX006356

PATIENT
  Age: 9 Year
  Sex: Female
  Weight: 24.7 kg

DRUGS (52)
  1. HOLOXAN [Suspect]
     Indication: RHABDOMYOSARCOMA
     Route: 042
     Dates: start: 20120525
  2. HOLOXAN [Suspect]
     Route: 042
     Dates: start: 20120404
  3. HOLOXAN [Suspect]
     Route: 042
     Dates: start: 20120501
  4. HOLOXAN [Suspect]
     Route: 042
     Dates: start: 20120627
  5. HOLOXAN [Suspect]
     Route: 042
     Dates: start: 20111229
  6. HOLOXAN [Suspect]
     Route: 042
     Dates: start: 20120124
  7. HOLOXAN [Suspect]
     Route: 042
     Dates: start: 20120218
  8. HOLOXAN [Suspect]
     Route: 042
     Dates: start: 20120723
  9. HOLOXAN [Suspect]
     Route: 042
     Dates: start: 20120313
  10. UROMITEXAN [Suspect]
     Indication: RHABDOMYOSARCOMA
     Route: 042
     Dates: start: 20120525
  11. UROMITEXAN [Suspect]
     Route: 042
     Dates: start: 20120404
  12. UROMITEXAN [Suspect]
     Route: 042
     Dates: start: 20120501
  13. UROMITEXAN [Suspect]
     Route: 042
     Dates: start: 20120627
  14. UROMITEXAN [Suspect]
     Route: 042
     Dates: start: 20111229
  15. UROMITEXAN [Suspect]
     Route: 042
     Dates: start: 20120123
  16. UROMITEXAN [Suspect]
     Route: 042
     Dates: start: 20120218
  17. UROMITEXAN [Suspect]
     Route: 042
     Dates: start: 20120313
  18. UROMITEXAN [Suspect]
     Route: 042
     Dates: start: 20120723
  19. BEVACIZUMAB [Suspect]
     Indication: RHABDOMYOSARCOMA
     Route: 042
     Dates: start: 20120505
  20. BEVACIZUMAB [Suspect]
     Route: 042
     Dates: start: 20120404
  21. BEVACIZUMAB [Suspect]
     Route: 042
     Dates: start: 20120501
  22. BEVACIZUMAB [Suspect]
     Route: 042
     Dates: start: 20111229
  23. BEVACIZUMAB [Suspect]
     Route: 042
     Dates: start: 20120123, end: 20120206
  24. BEVACIZUMAB [Suspect]
     Route: 042
     Dates: start: 20120218
  25. BEVACIZUMAB [Suspect]
     Route: 042
     Dates: start: 20120313
  26. VINCRISTINE [Suspect]
     Indication: RHABDOMYOSARCOMA
     Route: 042
     Dates: start: 20120525
  27. VINCRISTINE [Suspect]
     Route: 042
     Dates: start: 20120404
  28. VINCRISTINE [Suspect]
     Route: 042
     Dates: start: 20120501
  29. VINCRISTINE [Suspect]
     Route: 042
     Dates: start: 20120627
  30. VINCRISTINE [Suspect]
     Route: 042
     Dates: start: 20111229
  31. VINCRISTINE [Suspect]
     Route: 042
     Dates: start: 20120123, end: 20120206
  32. VINCRISTINE [Suspect]
     Route: 042
     Dates: start: 20120207
  33. VINCRISTINE [Suspect]
     Route: 042
     Dates: start: 20120218
  34. VINCRISTINE [Suspect]
     Route: 042
     Dates: start: 20120313
  35. VINCRISTINE [Suspect]
     Route: 042
     Dates: start: 20120723
  36. DACTINOMYCIN [Suspect]
     Indication: RHABDOMYOSARCOMA
     Route: 042
     Dates: start: 20120525
  37. DACTINOMYCIN [Suspect]
     Route: 042
     Dates: start: 20120404
  38. DACTINOMYCIN [Suspect]
     Route: 042
     Dates: start: 20120501
  39. DACTINOMYCIN [Suspect]
     Route: 042
     Dates: start: 20120627
  40. DACTINOMYCIN [Suspect]
     Route: 042
     Dates: start: 20111229
  41. DACTINOMYCIN [Suspect]
     Route: 042
     Dates: start: 20120123
  42. DACTINOMYCIN [Suspect]
     Route: 042
     Dates: start: 20120218
  43. DACTINOMYCIN [Suspect]
     Route: 042
     Dates: start: 20120313
  44. DACTINOMYCIN [Suspect]
     Route: 042
     Dates: start: 20120723
  45. DOXORUBICIN [Suspect]
     Indication: RHABDOMYOSARCOMA
     Route: 042
     Dates: start: 20120313
  46. DOXORUBICIN [Suspect]
     Route: 042
     Dates: start: 20111229
  47. DOXORUBICIN [Suspect]
     Route: 042
     Dates: start: 20120123
  48. DOXORUBICIN [Suspect]
     Route: 042
     Dates: start: 20120218
  49. COTRIMOXAZOLE [Concomitant]
     Indication: DRUG USE FOR UNKNOWN INDICATION
     Dosage: half caps
     Route: 065
     Dates: start: 20111231
  50. MYCOSTATIN [Concomitant]
     Indication: DRUG USE FOR UNKNOWN INDICATION
     Route: 065
     Dates: start: 20120322, end: 20120331
  51. PARACETAMOL [Concomitant]
     Indication: DRUG USE FOR UNKNOWN INDICATION
     Route: 065
     Dates: start: 20120324, end: 20120326
  52. PARACETAMOL [Concomitant]
     Route: 065
     Dates: start: 20120204, end: 20120204

REACTIONS (8)
  - Febrile neutropenia [Recovered/Resolved]
  - Febrile neutropenia [Recovered/Resolved]
  - Febrile neutropenia [Recovered/Resolved]
  - Febrile neutropenia [Recovered/Resolved]
  - Febrile neutropenia [Recovered/Resolved]
  - Febrile neutropenia [Recovered/Resolved]
  - Febrile neutropenia [Recovered/Resolved]
  - Febrile neutropenia [Recovered/Resolved]
